FAERS Safety Report 15847311 (Version 2)
Quarter: 2019Q1

REPORT INFORMATION
  Report Type: Spontaneous
  Country: JP (occurrence: JP)
  Receive Date: 20190121
  Receipt Date: 20190205
  Transmission Date: 20190417
  Serious: Yes (Hospitalization, Other)
  Sender: FDA-Public Use
  Company Number: JP-009507513-1901JPN001306J

PATIENT
  Age: 15 Year
  Sex: Female
  Weight: 41 kg

DRUGS (1)
  1. NU-LOTAN TABLETS 50MG [Suspect]
     Active Substance: LOSARTAN
     Dosage: UNK
     Route: 048

REACTIONS (1)
  - Prerenal failure [Recovering/Resolving]
